FAERS Safety Report 5785956-7 (Version None)
Quarter: 2008Q2

REPORT INFORMATION
  Report Type: 
  Country: None (occurrence: None)
  Receive Date: 20080619
  Receipt Date: 20080618
  Transmission Date: 20081010
  Serious: Yes (Hospitalization)
  Sender: FDA-Public Use
  Company Number: 2008SP011894

PATIENT
  Age: 68 Year
  Sex: Female
  Weight: 53 kg

DRUGS (1)
  1. PEG-INTRON [Suspect]
     Indication: MALIGNANT MELANOMA
     Dosage: 3 ,CG/KG

REACTIONS (2)
  - LUNG DISORDER [None]
  - WHITE BLOOD CELL COUNT DECREASED [None]
